FAERS Safety Report 6367524-1 (Version None)
Quarter: 2009Q3

REPORT INFORMATION
  Report Type: 
  Country: None (occurrence: None)
  Receive Date: 20090921
  Receipt Date: 20090911
  Transmission Date: 20100115
  Serious: Yes (Other)
  Sender: FDA-Public Use
  Company Number: US-SANOFI-SYNTHELABO-A03200904100

PATIENT
  Sex: Female

DRUGS (6)
  1. PLAVIX [Suspect]
     Indication: STENT PLACEMENT
     Route: 048
     Dates: start: 20060101
  2. PLAVIX [Suspect]
     Indication: ARTERIAL DISORDER
     Route: 048
     Dates: start: 20060101
  3. PLAVIX [Suspect]
     Route: 048
  4. PLAVIX [Suspect]
     Route: 048
  5. PLAVIX [Suspect]
     Route: 048
  6. PLAVIX [Suspect]
     Route: 048

REACTIONS (5)
  - DRUG HYPERSENSITIVITY [None]
  - DRY THROAT [None]
  - MYOCARDIAL INFARCTION [None]
  - OCULAR HYPERAEMIA [None]
  - SWELLING [None]
